FAERS Safety Report 21629569 (Version 1)
Quarter: 2022Q4

REPORT INFORMATION
  Report Type: Spontaneous
  Country: DK (occurrence: DK)
  Receive Date: 20221122
  Receipt Date: 20221122
  Transmission Date: 20230113
  Serious: Yes (Hospitalization, Other)
  Sender: FDA-Public Use
  Company Number: DK-PFIZER INC-PV202200107743

PATIENT
  Age: 21 Year
  Sex: Female
  Weight: 60 kg

DRUGS (5)
  1. INFLIXIMAB [Suspect]
     Active Substance: INFLIXIMAB
     Indication: Proctitis ulcerative
     Dosage: 5 MG/KG (ADMINISTERED IN WEEK 0, 2 AND 6)
     Route: 042
     Dates: start: 20220614, end: 20220729
  2. INFLIXIMAB [Suspect]
     Active Substance: INFLIXIMAB
     Dosage: 5 MG/KG (ADMINISTERED IN WEEK 0, 2 AND 6)
     Route: 042
     Dates: start: 20220614, end: 20220729
  3. HYRIMOZ [Suspect]
     Active Substance: ADALIMUMAB-ADAZ
     Indication: Proctitis ulcerative
     Dosage: 40 MG, BIW
     Route: 058
     Dates: start: 20220809, end: 20221018
  4. HYRIMOZ [Suspect]
     Active Substance: ADALIMUMAB-ADAZ
     Dosage: 40 MG, BIW
     Route: 058
     Dates: start: 20220809, end: 20221018
  5. HYRIMOZ [Concomitant]
     Active Substance: ADALIMUMAB-ADAZ
     Dosage: UNK

REACTIONS (2)
  - Respiratory symptom [Unknown]
  - Pulmonary tuberculosis [Recovering/Resolving]

NARRATIVE: CASE EVENT DATE: 20221001
